FAERS Safety Report 25305464 (Version 1)
Quarter: 2025Q2

REPORT INFORMATION
  Report Type: Spontaneous
  Country: US (occurrence: None)
  Receive Date: 20250513
  Receipt Date: 20250513
  Transmission Date: 20250716
  Serious: Yes (Hospitalization)
  Sender: FDA-CTU
  Company Number: None

PATIENT
  Age: 77 Year
  Sex: Male
  Weight: 96 kg

DRUGS (3)
  1. LINEZOLID [Suspect]
     Active Substance: LINEZOLID
     Indication: Toe amputation
     Dosage: FREQUENCY : TWICE A DAY;?
     Route: 048
  2. LINEZOLID [Suspect]
     Active Substance: LINEZOLID
     Indication: Infection
  3. WARFARIN [Suspect]
     Active Substance: WARFARIN

REACTIONS (3)
  - Thrombocytopenia [None]
  - Rectal haemorrhage [None]
  - Epistaxis [None]

NARRATIVE: CASE EVENT DATE: 20241125
